FAERS Safety Report 6100112-0 (Version None)
Quarter: 2009Q1

REPORT INFORMATION
  Report Type: 
  Country: None (occurrence: None)
  Receive Date: 20090303
  Receipt Date: 20090224
  Transmission Date: 20090719
  Serious: Yes (Other)
  Sender: FDA-Public Use
  Company Number: FR-AVENTIS-200910748FR

PATIENT
  Age: 29 Year
  Sex: Female

DRUGS (1)
  1. LOVENOX [Suspect]
     Indication: DRUG USE FOR UNKNOWN INDICATION
     Dates: start: 20060101, end: 20070101

REACTIONS (2)
  - OSTEOPOROSIS [None]
  - SPINAL FRACTURE [None]
